FAERS Safety Report 4766252-3 (Version None)
Quarter: 2005Q3

REPORT INFORMATION
  Report Type: 
  Country: None (occurrence: None)
  Receive Date: 20050909
  Receipt Date: 20050830
  Transmission Date: 20060218
  Serious: Yes (Death)
  Sender: FDA-Public Use
  Company Number: 2005EU001925

PATIENT
  Age: 26 Year
  Sex: Female

DRUGS (8)
  1. FK506(TACROLIMUS) CAPSULE [Suspect]
     Indication: RENAL AND PANCREAS TRANSPLANT
     Dosage: 14.50 MG, UNKNOWN/D, ORAL
     Route: 048
     Dates: start: 20030604, end: 20040201
  2. SIROLIMUS (SIROLIMUS) [Suspect]
     Indication: RENAL AND PANCREAS TRANSPLANT
     Dosage: 1.00 MG, UNKNOWN/D, ORAL
     Route: 048
     Dates: start: 20030604, end: 20031103
  3. PREDNISONE [Suspect]
     Indication: RENAL AND PANCREAS TRANSPLANT
     Dosage: 5.00 MG, UNKNOWN/D, ORAL
     Route: 048
     Dates: start: 20030604, end: 20031103
  4. MYCOPHENOLATE MOFETIL (MYCOPHENOLATE MOFETIL) [Concomitant]
  5. REDUCTO-SPEZIAL (SODIUM PHOSPHATE DIBASIC, POTASSIUM PHOSPHATE MONOBAS [Concomitant]
  6. NADROPARIN (NADROPARIN) [Concomitant]
  7. SULFAMETHOXAZOLE + TRIMETHOPRIM [Concomitant]
  8. DILTIAZEM [Concomitant]

REACTIONS (12)
  - EPSTEIN-BARR VIRUS INFECTION [None]
  - GASTROENTERITIS [None]
  - HEPATIC HAEMORRHAGE [None]
  - INTESTINAL ANASTOMOTIC LEAK [None]
  - METASTASIS [None]
  - MULTI-ORGAN FAILURE [None]
  - NON-HODGKIN'S LYMPHOMA [None]
  - PERITONITIS [None]
  - POST PROCEDURAL HAEMORRHAGE [None]
  - SEPSIS [None]
  - SMALL INTESTINAL HAEMORRHAGE [None]
  - SMALL INTESTINAL PERFORATION [None]
